FAERS Safety Report 20152833 (Version 1)
Quarter: 2021Q4

REPORT INFORMATION
  Report Type: Spontaneous
  Country: US (occurrence: None)
  Receive Date: 20211206
  Receipt Date: 20211206
  Transmission Date: 20220303
  Serious: Yes (Disabling, Other)
  Sender: FDA-Public Use
  Company Number: None

PATIENT
  Age: 76 Year
  Sex: Male
  Weight: 58.95 kg

DRUGS (9)
  1. PEMBROLIZUMAB [Suspect]
     Active Substance: PEMBROLIZUMAB
     Indication: Lung carcinoma cell type unspecified stage IV
     Route: 042
     Dates: start: 20210914, end: 20210914
  2. PEMBROLIZUMAB [Suspect]
     Active Substance: PEMBROLIZUMAB
     Indication: Non-small cell lung cancer
  3. Vitamin D 2000iu [Concomitant]
  4. LANSOPRAZOLE [Concomitant]
     Active Substance: LANSOPRAZOLE
  5. QUININE [Concomitant]
     Active Substance: QUININE
  6. PROBIOTICS NOS [Concomitant]
     Active Substance: PROBIOTICS NOS
  7. TAMSULOSIN [Concomitant]
     Active Substance: TAMSULOSIN
  8. FAMOTIDINE [Concomitant]
     Active Substance: FAMOTIDINE
  9. ALBUTEROL [Concomitant]
     Active Substance: ALBUTEROL

REACTIONS (17)
  - Headache [None]
  - Arthralgia [None]
  - Pain [None]
  - Dizziness [None]
  - Gait disturbance [None]
  - Pyrexia [None]
  - Fall [None]
  - Hypophagia [None]
  - Delirium [None]
  - Confusional state [None]
  - Loss of personal independence in daily activities [None]
  - Hallucination [None]
  - CSF white blood cell count increased [None]
  - CSF protein increased [None]
  - Uveitis [None]
  - Neurotoxicity [None]
  - Renal impairment [None]

NARRATIVE: CASE EVENT DATE: 20210924
